FAERS Safety Report 15736073 (Version 1)
Quarter: 2018Q4

REPORT INFORMATION
  Report Type: Spontaneous
  Country: GB (occurrence: GB)
  Receive Date: 20181218
  Receipt Date: 20181218
  Transmission Date: 20190205
  Serious: Yes (Other)
  Sender: FDA-Public Use
  Company Number: GB-B. BRAUN MEDICAL INC.-2060323

PATIENT
  Age: 44 Year
  Sex: Female
  Weight: 100 kg

DRUGS (14)
  1. AMOXICILLIN. [Concomitant]
     Active Substance: AMOXICILLIN
     Dates: start: 20170728, end: 20170802
  2. ZOPICLONE [Concomitant]
     Active Substance: ZOPICLONE
     Dates: start: 20170412
  3. VALPROIC ACID. [Concomitant]
     Active Substance: VALPROIC ACID
     Dates: start: 20170412
  4. BECLOMETASONE DIPROPIONATE [Concomitant]
     Active Substance: BECLOMETHASONE DIPROPIONATE
     Dates: start: 20170412
  5. MORPHINE SULFATE. [Concomitant]
     Active Substance: MORPHINE SULFATE
     Dates: start: 20170412
  6. VORTIOXETINE. [Concomitant]
     Active Substance: VORTIOXETINE
     Dates: start: 20170412
  7. CO-CODAMOL (CODEINE PHOSPHATE, PARACETAMOL) [Concomitant]
     Dates: start: 20170412
  8. NICORETTE [Concomitant]
     Active Substance: NICOTINE
     Dates: start: 20170915, end: 20170929
  9. NICOTINE. [Concomitant]
     Active Substance: NICOTINE
     Dates: start: 20170915, end: 20170929
  10. METRONIDAZOLE INJECTION USP (5 MG/ML) IN PAB? PLASTIC CONTAINER (NDA 0 [Suspect]
     Active Substance: METRONIDAZOLE
     Dates: start: 20171004
  11. NITROFURANTOIN. [Concomitant]
     Active Substance: NITROFURANTOIN
     Dates: start: 20170916, end: 20170923
  12. VENTOLIN (SALBUTAMOL, LEVOSALBUTAMOL SULFATE) [Concomitant]
     Route: 055
     Dates: start: 20170412
  13. LANSOPRAZOLE. [Concomitant]
     Active Substance: LANSOPRAZOLE
     Dates: start: 20170412
  14. GABAPENTIN. [Concomitant]
     Active Substance: GABAPENTIN
     Dates: start: 20170517

REACTIONS (1)
  - Rash generalised [Recovering/Resolving]

NARRATIVE: CASE EVENT DATE: 20171004
